FAERS Safety Report 8380349-0 (Version None)
Quarter: 2012Q2

REPORT INFORMATION
  Report Type: 
  Country: None (occurrence: None)
  Receive Date: 20120504
  Receipt Date: 20120501
  Transmission Date: 20120825
  Serious: Yes (Other)
  Sender: FDA-Public Use
  Company Number: 2011028689

PATIENT
  Age: 51 Year
  Sex: Female
  Weight: 74.8435 kg

DRUGS (38)
  1. AZITHROMYCIN [Concomitant]
  2. PATANOL [Concomitant]
  3. PRAZOSIN GITS [Concomitant]
  4. LISINOPRIL [Concomitant]
  5. IMITREX [Concomitant]
  6. LORAZEPAM [Concomitant]
  7. ATENOLOL [Concomitant]
  8. AMLODIPINE BESYLATE [Concomitant]
  9. DEPAKOTE ER [Concomitant]
  10. MELATONIN (MELATONIN) [Concomitant]
  11. PROPRANOLOL [Concomitant]
  12. HIZENTRA [Suspect]
  13. ALENDRONATE SODIUM [Concomitant]
  14. TRAMADOL HCL [Concomitant]
  15. EFFEXOR XR [Concomitant]
  16. DIPHENHYDRAMINE HCL [Concomitant]
  17. HIZENTRA [Suspect]
  18. IMIPRAMINE [Concomitant]
  19. CLONIDINE [Concomitant]
  20. PROMETHAZINE [Concomitant]
  21. HALOBETASOL (ULOBETASOL) [Concomitant]
  22. MULTIVITAMIN (MULTIVITAMIN /00831701/) [Concomitant]
  23. LIDOCAINE/PRILOCAINE (EMLA /00675501/) [Concomitant]
  24. ASPIRIN [Concomitant]
  25. PROBIOTIC (LACTOBACILLUS REUTERI) [Concomitant]
  26. HIZENTRA [Suspect]
     Indication: HYPOGLOBULINAEMIA
     Dosage: SEE IMAGE
     Route: 058
     Dates: start: 20110502
  27. HIZENTRA [Suspect]
     Indication: HYPOGLOBULINAEMIA
     Dosage: SEE IMAGE
     Route: 058
     Dates: start: 20101228
  28. HIZENTRA [Suspect]
     Indication: HYPOGLOBULINAEMIA
     Dosage: SEE IMAGE
     Route: 058
     Dates: start: 20110119
  29. HIZENTRA [Suspect]
     Indication: HYPOGLOBULINAEMIA
     Dosage: SEE IMAGE
     Route: 058
     Dates: start: 20111201
  30. THYROID TAB [Concomitant]
  31. INTUNIV ER (GUANFACINE) [Concomitant]
  32. VITAMIN D [Concomitant]
  33. MAGNESIUM OXIDE (MAGNESIUM OXIDE) [Concomitant]
  34. BUDESONIDE [Concomitant]
  35. LOVAZA (OMEGA-3 FATTY ACIDS) [Concomitant]
  36. XANAX [Concomitant]
  37. VITAMIN B COMPLEX WITH VITAMIN C (VITAMIN B-COMPLEX WITH VITAMIN C) [Concomitant]
  38. SEROQUEL [Concomitant]

REACTIONS (3)
  - INFUSION SITE SWELLING [None]
  - COLITIS [None]
  - INFUSION SITE ERYTHEMA [None]
